FAERS Safety Report 25657392 (Version 5)
Quarter: 2025Q3

REPORT INFORMATION
  Report Type: Spontaneous
  Country: US (occurrence: US)
  Receive Date: 20250808
  Receipt Date: 20250929
  Transmission Date: 20251021
  Serious: No
  Sender: SANOFI AVENTIS
  Company Number: US-SA-2025SA230389

PATIENT
  Age: 18 Year
  Sex: Female

DRUGS (2)
  1. DUPIXENT [Suspect]
     Active Substance: DUPILUMAB
     Indication: Dermatitis atopic
     Route: 058
     Dates: start: 202506, end: 202506
  2. DUPIXENT [Suspect]
     Active Substance: DUPILUMAB
     Indication: Eczema
     Dosage: 300 MG, QOW
     Route: 058
     Dates: start: 2025

REACTIONS (12)
  - Skin swelling [Not Recovered/Not Resolved]
  - Skin discolouration [Not Recovered/Not Resolved]
  - Scratch [Not Recovered/Not Resolved]
  - Skin texture abnormal [Not Recovered/Not Resolved]
  - Cyst [Unknown]
  - Alopecia [Unknown]
  - Pustule [Unknown]
  - Dry skin [Unknown]
  - Ocular hyperaemia [Unknown]
  - Dry eye [Unknown]
  - Dermatitis atopic [Unknown]
  - Eczema [Unknown]

NARRATIVE: CASE EVENT DATE: 20250101
